FAERS Safety Report 6040159-6 (Version None)
Quarter: 2009Q1

REPORT INFORMATION
  Report Type: 
  Country: None (occurrence: None)
  Receive Date: 20090116
  Receipt Date: 20080102
  Transmission Date: 20090719
  Serious: No
  Sender: FDA-Public Use
  Company Number: US-BRISTOL-MYERS SQUIBB COMPANY-14028781

PATIENT
  Age: 13 Year
  Sex: Male

DRUGS (5)
  1. ABILIFY [Suspect]
     Indication: AFFECTIVE DISORDER
     Dosage: STARTED AT A DOSE OF 5 MG. THEN DOSE INCREASED TO 5MG BID. ON 02JAN07 DOSE REDUCED TO 2.5MG TID
     Route: 048
     Dates: start: 20071101
  2. ZANTAC [Concomitant]
  3. DDAVP [Concomitant]
  4. SEROQUEL [Concomitant]
     Dates: end: 20071101
  5. CLONIDINE [Concomitant]

REACTIONS (2)
  - TONGUE DISORDER [None]
  - TREMOR [None]
